FAERS Safety Report 13976296 (Version 2)
Quarter: 2017Q3

REPORT INFORMATION
  Report Type: Spontaneous
  Country: US (occurrence: US)
  Receive Date: 20170915
  Receipt Date: 20170925
  Transmission Date: 20171128
  Serious: No
  Sender: FDA-Public Use
  Company Number: US-PFIZER INC-2017399404

PATIENT
  Age: 56 Year
  Sex: Female

DRUGS (2)
  1. ENBREL [Suspect]
     Active Substance: ETANERCEPT
     Dosage: 1 ML, WEEKLY
     Route: 058
  2. METHOTREXATE SODIUM. [Suspect]
     Active Substance: METHOTREXATE SODIUM
     Dosage: UNK UNK, WEEKLY[INJECT 0.6CC ]
     Route: 058

REACTIONS (25)
  - Joint swelling [Unknown]
  - Feeling hot [Unknown]
  - Dyspnoea [Unknown]
  - Musculoskeletal stiffness [Unknown]
  - Tenderness [Unknown]
  - Foot deformity [Unknown]
  - Pain in extremity [Unknown]
  - Peripheral swelling [Unknown]
  - Nausea [Unknown]
  - Visual impairment [Unknown]
  - Dysuria [Unknown]
  - Hypoaesthesia [Unknown]
  - Sleep apnoea syndrome [Unknown]
  - Eye pain [Unknown]
  - Cough [Unknown]
  - Malaise [Unknown]
  - Erythema [Unknown]
  - Arthralgia [Unknown]
  - Fatigue [Unknown]
  - Joint stiffness [Unknown]
  - Dry eye [Unknown]
  - Contusion [Unknown]
  - Alopecia [Unknown]
  - Asthenia [Unknown]
  - Fibromyalgia [Unknown]
